FAERS Safety Report 6593904-5 (Version None)
Quarter: 2010Q1

REPORT INFORMATION
  Report Type: 
  Country: None (occurrence: None)
  Receive Date: 20100222
  Receipt Date: 20100209
  Transmission Date: 20100710
  Serious: Yes (Hospitalization, Other)
  Sender: FDA-Public Use
  Company Number: PHHY2010JP07607

PATIENT
  Age: 76 Year
  Sex: Female

DRUGS (3)
  1. ZOMETA [Suspect]
     Indication: METASTASES TO BONE
     Dosage: 4 MG
     Route: 042
     Dates: start: 20061201
  2. OXYCONTIN [Suspect]
     Dosage: 20 MG
  3. DUROTEP [Suspect]

REACTIONS (2)
  - METASTASES TO MENINGES [None]
  - NAUSEA [None]
